FAERS Safety Report 14389322 (Version 3)
Quarter: 2019Q3

REPORT INFORMATION
  Report Type: Spontaneous
  Country: US (occurrence: US)
  Receive Date: 20180115
  Receipt Date: 20190827
  Transmission Date: 20191004
  Serious: Yes (Other)
  Sender: FDA-Public Use
  Company Number: US-SA-2017SA241430

PATIENT
  Age: 64 Year
  Sex: Female
  Weight: 97.07 kg

DRUGS (4)
  1. TAXOTERE [Suspect]
     Active Substance: DOCETAXEL
     Dosage: 165.8 MG, Q3W
     Route: 042
     Dates: start: 20120306, end: 20120306
  2. CYCLOPHOSPHAMIDE. [Concomitant]
     Active Substance: CYCLOPHOSPHAMIDE
  3. TAXOTERE [Suspect]
     Active Substance: DOCETAXEL
     Indication: BREAST CANCER
     Dosage: 165.8 MG, Q3W
     Route: 042
     Dates: start: 20111122, end: 20111122
  4. TAXOL [Concomitant]
     Active Substance: PACLITAXEL

REACTIONS (4)
  - Emotional distress [Unknown]
  - Anxiety [Unknown]
  - Psychological trauma [Unknown]
  - Alopecia [Recovering/Resolving]

NARRATIVE: CASE EVENT DATE: 201209
